FAERS Safety Report 4880389-X (Version None)
Quarter: 2005Q4

REPORT INFORMATION
  Report Type: 
  Country: None (occurrence: None)
  Receive Date: 20051223
  Receipt Date: 20051010
  Transmission Date: 20060501
  Serious: No
  Sender: FDA-Public Use
  Company Number: 05P-163-0313278-00

PATIENT
  Age: 29 Year
  Sex: Female

DRUGS (1)
  1. HUMIRA [Suspect]
     Indication: PSORIATIC ARTHROPATHY
     Dosage: 40 MG, SUBCUTANEOUS
     Route: 058

REACTIONS (5)
  - INJECTION SITE ERYTHEMA [None]
  - INJECTION SITE NODULE [None]
  - INJECTION SITE REACTION [None]
  - INJECTION SITE SWELLING [None]
  - VENTRICULAR TACHYCARDIA [None]
